FAERS Safety Report 8922246 (Version 1)
Quarter: 2012Q4

REPORT INFORMATION
  Report Type: Report from Study
  Country: CA (occurrence: CA)
  Receive Date: 20121123
  Receipt Date: 20121123
  Transmission Date: 20130627
  Serious: Yes (Other)
  Sender: FDA-Public Use
  Company Number: CA-JNJFOC-20121108790

PATIENT
  Age: 63 Year
  Sex: Female
  Weight: 54.5 kg

DRUGS (2)
  1. REMICADE [Suspect]
     Indication: CROHN^S DISEASE
     Route: 042
     Dates: start: 20110110
  2. METHOTREXATE [Concomitant]
     Route: 065

REACTIONS (6)
  - Weight decreased [Unknown]
  - Muscle atrophy [Unknown]
  - Fatigue [Unknown]
  - Constipation [Unknown]
  - Pruritus [Unknown]
  - Rash [Unknown]
